FAERS Safety Report 18079884 (Version 2)
Quarter: 2020Q3

REPORT INFORMATION
  Report Type: Spontaneous
  Country: TW (occurrence: TW)
  Receive Date: 20200728
  Receipt Date: 20200730
  Transmission Date: 20201103
  Serious: Yes (Other)
  Sender: FDA-Public Use
  Company Number: TW-PFIZER INC-2020280119

PATIENT
  Age: 57 Year
  Sex: Female

DRUGS (1)
  1. XELJANZ [Suspect]
     Active Substance: TOFACITINIB CITRATE
     Indication: RHEUMATOID ARTHRITIS
     Dosage: 5 MG, 2X/DAY (1DF(1#) TWICE A DAY(BID) )
     Route: 048
     Dates: start: 20180911

REACTIONS (4)
  - Parkinson^s disease [Unknown]
  - Dysarthria [Not Recovered/Not Resolved]
  - Chorea [Unknown]
  - Muscle twitching [Not Recovered/Not Resolved]
